FAERS Safety Report 6310421-8 (Version None)
Quarter: 2009Q3

REPORT INFORMATION
  Report Type: 
  Country: None (occurrence: None)
  Receive Date: 20090814
  Receipt Date: 20090803
  Transmission Date: 20100115
  Serious: Yes (Other)
  Sender: FDA-Public Use
  Company Number: DE-PFIZER INC-2009249287

PATIENT
  Age: 46 Year

DRUGS (3)
  1. NEURONTIN [Suspect]
     Indication: PAIN
     Dosage: 600 MG, 2X/DAY
     Route: 048
     Dates: start: 20090619
  2. DIPIDOLOR [Concomitant]
     Dosage: UNK
  3. FURORESE [Concomitant]
     Dosage: UNK

REACTIONS (1)
  - FLUID RETENTION [None]
